FAERS Safety Report 4290006-8 (Version None)
Quarter: 2004Q1

REPORT INFORMATION
  Report Type: 
  Country: None (occurrence: None)
  Receive Date: 20040206
  Receipt Date: 20040120
  Transmission Date: 20041129
  Serious: Yes (Hospitalization)
  Sender: FDA-Public Use
  Company Number: 200400434

PATIENT
  Age: 65 Year
  Sex: Female

DRUGS (1)
  1. BOTULINUM TOXIN TYPE A [Suspect]
     Indication: BLEPHAROSPASM
     Dosage: 250 UNITS PRN IM
     Route: 030

REACTIONS (21)
  - ACCOMMODATION DISORDER [None]
  - APTYALISM [None]
  - ASTHENIA [None]
  - BOTULISM [None]
  - CONSTIPATION [None]
  - DIPLOPIA [None]
  - DYSPHAGIA [None]
  - EYELID PTOSIS [None]
  - FLATULENCE [None]
  - HOARSENESS [None]
  - MOVEMENT DISORDER [None]
  - MUSCULAR WEAKNESS [None]
  - MYDRIASIS [None]
  - NAUSEA [None]
  - PALLOR [None]
  - PHOTOPHOBIA [None]
  - PUPILLARY DISORDER [None]
  - RESPIRATORY DISORDER [None]
  - VISUAL ACUITY REDUCED [None]
  - VISUAL DISTURBANCE [None]
  - VOMITING [None]
